FAERS Safety Report 4869460-6 (Version None)
Quarter: 2005Q4

REPORT INFORMATION
  Report Type: 
  Country: None (occurrence: None)
  Receive Date: 20051230
  Receipt Date: 20050616
  Transmission Date: 20060501
  Serious: Yes (Hospitalization)
  Sender: FDA-Public Use
  Company Number: US-MERCK-0506USA02692

PATIENT
  Age: 55 Year
  Sex: Female
  Weight: 125 kg

DRUGS (5)
  1. VIOXX [Suspect]
     Indication: ARTHRALGIA
     Route: 048
     Dates: start: 20010101, end: 20040101
  2. VERAPAMIL HYDROCHLORIDE [Concomitant]
     Route: 065
  3. DYAZIDE [Concomitant]
     Route: 065
  4. ZOLOFT [Concomitant]
     Route: 065
  5. ADVAIR DISKUS 250/50 [Concomitant]
     Route: 065

REACTIONS (11)
  - CARDIAC FAILURE CONGESTIVE [None]
  - DIASTOLIC DYSFUNCTION [None]
  - DILATATION ATRIAL [None]
  - ELECTROCARDIOGRAM T WAVE ABNORMAL [None]
  - FOOT FRACTURE [None]
  - HYPERTENSION [None]
  - JOINT SPRAIN [None]
  - PICKWICKIAN SYNDROME [None]
  - SINUS TACHYCARDIA [None]
  - SLEEP APNOEA SYNDROME [None]
  - VENTRICULAR HYPERTROPHY [None]
